FAERS Safety Report 20636596 (Version 1)
Quarter: 2022Q1

REPORT INFORMATION
  Report Type: Spontaneous
  Country: JP (occurrence: JP)
  Receive Date: 20220325
  Receipt Date: 20220325
  Transmission Date: 20220423
  Serious: Yes (Other)
  Sender: FDA-Public Use
  Company Number: JP-BAYER-2022A041508

PATIENT
  Sex: Female

DRUGS (2)
  1. YAZ [Suspect]
     Active Substance: DROSPIRENONE\ETHINYL ESTRADIOL
     Route: 048
  2. YAZ [Suspect]
     Active Substance: DROSPIRENONE\ETHINYL ESTRADIOL
     Route: 048

REACTIONS (7)
  - Depressed level of consciousness [None]
  - Fall [None]
  - Cyanosis [None]
  - Withdrawal bleed [None]
  - Heavy menstrual bleeding [None]
  - Inappropriate schedule of product administration [None]
  - Hyporesponsive to stimuli [None]

NARRATIVE: CASE EVENT DATE: 20220319
